FAERS Safety Report 4383347-7 (Version None)
Quarter: 2004Q2

REPORT INFORMATION
  Report Type: 
  Country: None (occurrence: None)
  Receive Date: 20040618
  Receipt Date: 20040527
  Transmission Date: 20050107
  Serious: Yes (Other)
  Sender: FDA-Public Use
  Company Number: US_0406103374

PATIENT
  Age: 81 Year

DRUGS (5)
  1. EVISTA [Suspect]
  2. FOSAMAX [Concomitant]
  3. MIACALCIN [Concomitant]
  4. ORTHO-PREFEST [Concomitant]
  5. CALCIUM AND VITAMIN D [Concomitant]

REACTIONS (6)
  - ABDOMINAL PAIN [None]
  - BODY HEIGHT DECREASED [None]
  - COMPRESSION FRACTURE [None]
  - HEADACHE [None]
  - INTERVERTEBRAL DISC DISORDER [None]
  - SPINAL DEFORMITY [None]
